FAERS Safety Report 9382318 (Version 2)
Quarter: 2013Q3

REPORT INFORMATION
  Report Type: Spontaneous
  Country: US (occurrence: US)
  Receive Date: 20130703
  Receipt Date: 20130731
  Transmission Date: 20140515
  Serious: No
  Sender: FDA-Public Use
  Company Number: US-TEVA-416575USA

PATIENT
  Sex: 0

DRUGS (2)
  1. COPAXONE [Suspect]
  2. INTERFERON [Concomitant]

REACTIONS (1)
  - Liver function test abnormal [Recovered/Resolved]
